FAERS Safety Report 6085682-3 (Version None)
Quarter: 2009Q1

REPORT INFORMATION
  Report Type: 
  Country: None (occurrence: None)
  Receive Date: 20090220
  Receipt Date: 20090114
  Transmission Date: 20090719
  Serious: No
  Sender: FDA-Public Use
  Company Number: US-BAYER-200841744NA

PATIENT
  Age: 64 Year
  Sex: Female

DRUGS (2)
  1. ULTRAVIST 300 [Suspect]
     Indication: NON-HODGKIN'S LYMPHOMA
     Dosage: TOTAL DAILY DOSE: 100 ML  UNIT DOSE: 100 ML
     Route: 042
     Dates: start: 20081226, end: 20081226
  2. GASTROGRAFIN [Concomitant]
     Indication: COMPUTERISED TOMOGRAM THORAX
     Route: 048
     Dates: start: 20081226, end: 20081226

REACTIONS (2)
  - BURNING SENSATION [None]
  - RASH ERYTHEMATOUS [None]
